FAERS Safety Report 23900235 (Version 1)
Quarter: 2024Q2

REPORT INFORMATION
  Report Type: Report from Study
  Country: CA (occurrence: CA)
  Receive Date: 20240526
  Receipt Date: 20240526
  Transmission Date: 20240716
  Serious: Yes (Hospitalization, Other)
  Sender: FDA-Public Use
  Company Number: CA-ABBVIE-5773769

PATIENT
  Age: 36 Year
  Sex: Female

DRUGS (1)
  1. RINVOQ [Suspect]
     Active Substance: UPADACITINIB
     Indication: Crohn^s disease
     Route: 048
     Dates: start: 20240429

REACTIONS (4)
  - Sepsis [Unknown]
  - Abdominal infection [Unknown]
  - Anal infection [Unknown]
  - Cyst [Unknown]

NARRATIVE: CASE EVENT DATE: 20240101
